FAERS Safety Report 9670848 (Version 1)
Quarter: 2013Q4

REPORT INFORMATION
  Report Type: Spontaneous
  Country: CH (occurrence: CH)
  Receive Date: 20131106
  Receipt Date: 20131106
  Transmission Date: 20140711
  Serious: Yes (Other)
  Sender: FDA-Public Use
  Company Number: PHHY2013CH123207

PATIENT
  Age: 29 Year
  Sex: Female

DRUGS (2)
  1. SIGNIFOR [Suspect]
     Indication: PITUITARY-DEPENDENT CUSHING^S SYNDROME
     Dosage: 0.6 MG, BID
     Route: 058
     Dates: start: 20130719, end: 20130920
  2. SIGNIFOR [Suspect]
     Dosage: 0.9 MG, BID
     Route: 058
     Dates: start: 20130921

REACTIONS (8)
  - Femur fracture [Unknown]
  - Arthralgia [Unknown]
  - Nausea [Unknown]
  - Dry mouth [Unknown]
  - Diarrhoea [Unknown]
  - Abdominal pain [Unknown]
  - Weight decreased [Unknown]
  - Pain in extremity [Unknown]
